FAERS Safety Report 7506157-8 (Version None)
Quarter: 2011Q2

REPORT INFORMATION
  Report Type: 
  Country: None (occurrence: None)
  Receive Date: 20110526
  Receipt Date: 20110523
  Transmission Date: 20111010
  Serious: No
  Sender: FDA-Public Use
  Company Number: US-PFIZER INC-2011111720

PATIENT
  Sex: Female
  Weight: 74.83 kg

DRUGS (1)
  1. ADVIL LIQUI-GELS [Suspect]
     Indication: PAIN
     Dosage: 200 MG, DAILY
     Route: 048
     Dates: start: 20110501, end: 20110501

REACTIONS (2)
  - ABDOMINAL DISCOMFORT [None]
  - DRUG INEFFECTIVE [None]
